FAERS Safety Report 5993817-3 (Version None)
Quarter: 2008Q4

REPORT INFORMATION
  Report Type: 
  Country: None (occurrence: None)
  Receive Date: 20081212
  Receipt Date: 20081013
  Transmission Date: 20090506
  Serious: No
  Sender: FDA-Public Use
  Company Number: US-ABBOTT-07P-163-0421440-00

PATIENT
  Sex: Female
  Weight: 86.26 kg

DRUGS (18)
  1. HUMIRA [Suspect]
     Indication: PSORIATIC ARTHROPATHY
     Route: 058
     Dates: end: 20070801
  2. HUMIRA [Suspect]
     Indication: PSORIASIS
     Route: 050
     Dates: start: 20070401
  3. HUMIRA [Suspect]
     Route: 058
     Dates: end: 20081006
  4. METHOTREXATE [Concomitant]
     Indication: PSORIATIC ARTHROPATHY
     Route: 048
     Dates: start: 20070401
  5. METHOTREXATE [Concomitant]
  6. FOLIC ACID [Concomitant]
     Indication: VITAMIN SUPPLEMENTATION
     Route: 048
     Dates: start: 20070401
  7. AMITRIPTYLINE HCL [Concomitant]
     Indication: DEPRESSION
     Dosage: 1-2 TABS EVERY NIGHT
     Route: 048
     Dates: start: 20060101
  8. AMITRIPTYLINE HCL [Concomitant]
     Indication: INSOMNIA
  9. DULOXETINE HYDROCHLORIDE [Concomitant]
     Indication: DEPRESSION
     Dosage: AT NIGHT
     Route: 048
     Dates: start: 20070801
  10. DULOXETINE HYDROCHLORIDE [Concomitant]
     Indication: ANXIETY
  11. ALPRAZOLAM [Concomitant]
     Indication: ANXIETY
     Dosage: 1-3 TABS
     Route: 048
  12. ALPRAZOLAM [Concomitant]
     Indication: STRESS
  13. STEROID CREAM [Concomitant]
     Indication: PSORIASIS
     Dosage: QD AND AS NEEDED
     Route: 061
     Dates: start: 19980101
  14. ESCITALOPRAM OXALATE [Concomitant]
     Indication: DEPRESSION
     Route: 048
     Dates: start: 20000101
  15. CONJUGATED ESTROGENS [Concomitant]
     Indication: MENOPAUSE
     Route: 048
     Dates: start: 20030101
  16. PANTOPRAZOLE SODIUM [Concomitant]
     Indication: GASTROOESOPHAGEAL REFLUX DISEASE
     Route: 048
  17. MOMETASONE FUROATE [Concomitant]
     Indication: SINUS DISORDER
     Route: 045
  18. PROPACET 100 [Concomitant]
     Indication: PAIN
     Route: 048

REACTIONS (14)
  - ARTHRALGIA [None]
  - DEPRESSION [None]
  - FALL [None]
  - FUNGAL INFECTION [None]
  - INJECTION SITE HAEMATOMA [None]
  - INJURY [None]
  - PRURITUS [None]
  - PSORIASIS [None]
  - SINUSITIS [None]
  - SKIN EXFOLIATION [None]
  - STRESS [None]
  - THYROID DISORDER [None]
  - UNDERDOSE [None]
  - WEIGHT INCREASED [None]
